FAERS Safety Report 13333403 (Version 1)
Quarter: 2017Q1

REPORT INFORMATION
  Report Type: Spontaneous
  Country: NL (occurrence: NL)
  Receive Date: 20170314
  Receipt Date: 20170314
  Transmission Date: 20170428
  Serious: Yes (Other)
  Sender: FDA-Public Use
  Company Number: NL-TEVA-749278ROM

PATIENT
  Sex: Female

DRUGS (1)
  1. FUROSEMIDE PCH 40MG [Suspect]
     Active Substance: FUROSEMIDE

REACTIONS (4)
  - Urinary retention [Not Recovered/Not Resolved]
  - Fluid retention [Not Recovered/Not Resolved]
  - Product substitution issue [Unknown]
  - Product substitution issue [None]
